FAERS Safety Report 8865600 (Version 1)
Quarter: 2012Q4

REPORT INFORMATION
  Report Type: 
  Country: US (occurrence: US)
  Receive Date: 20121024
  Receipt Date: 20121024
  Transmission Date: 20130627
  Serious: No
  Sender: FDA-Public Use
  Company Number: US-AMGEN-USASP2012003890

PATIENT
  Age: 54 Year
  Sex: Female
  Weight: 67.57 kg

DRUGS (12)
  1. ENBREL [Suspect]
     Dosage: 50 mg, qwk
  2. HYDROCHLOROTH [Concomitant]
     Dosage: 25 mg, UNK
  3. LISINOPRIL [Concomitant]
     Dosage: 5 mg, UNK
  4. LOVASTATIN [Concomitant]
     Dosage: 40 mg, UNK
  5. METHOTREXATE [Concomitant]
     Dosage: 2.5 mg, UNK
  6. FOLIC ACID [Concomitant]
     Dosage: 5 mg, UNK
  7. GLUCOVANCE [Concomitant]
     Dosage: UNK
  8. LIPITOR [Concomitant]
     Dosage: 40 mg, UNK
  9. PRILOSEC                           /00661201/ [Concomitant]
     Dosage: 40 mg, UNK
  10. VITAMIN C                          /00008001/ [Concomitant]
     Dosage: 500 mg, UNK
  11. CALCIUM [Concomitant]
     Dosage: UNK
  12. RUTIN                              /00055501/ [Concomitant]
     Dosage: UNK

REACTIONS (1)
  - Therapeutic response decreased [Unknown]
